FAERS Safety Report 8141831-4 (Version None)
Quarter: 2012Q1

REPORT INFORMATION
  Report Type: 
  Country: None (occurrence: None)
  Receive Date: 20120216
  Receipt Date: 20120206
  Transmission Date: 20120608
  Serious: Yes (Hospitalization)
  Sender: FDA-Public Use
  Company Number: CA-ELI_LILLY_AND_COMPANY-CA201111008842

PATIENT
  Age: 58 Year
  Sex: Male
  Weight: 70 kg

DRUGS (14)
  1. NEURONTIN [Concomitant]
     Dosage: 300 MG, TID
  2. CYCLOPHOSPHAMIDE [Concomitant]
     Dosage: 120 MG, MONTHLY (1/M)
     Route: 042
  3. VITAMIN D [Concomitant]
  4. FORTEO [Suspect]
     Indication: OSTEOPOROSIS
     Dosage: 20 UG, QD
     Route: 058
     Dates: start: 20110725
  5. CALCIUM [Concomitant]
  6. PRILOSEC [Concomitant]
  7. IMMUNE GLOBULIN NOS [Concomitant]
     Route: 042
  8. CALCIUM +VIT D [Concomitant]
     Dosage: UNK, BID
  9. MESNA [Concomitant]
  10. ASPIRIN [Concomitant]
  11. LIPITOR [Concomitant]
  12. POTASSIUM CHLORIDE [Concomitant]
  13. SEPTRA DS [Concomitant]
     Dosage: UNK, 3/W
  14. MEDROL [Concomitant]
     Dosage: 30 MG, QD

REACTIONS (2)
  - MONONEUROPATHY MULTIPLEX [None]
  - VASCULITIS [None]
